FAERS Safety Report 6047725-2 (Version None)
Quarter: 2009Q1

REPORT INFORMATION
  Report Type: 
  Country: None (occurrence: None)
  Receive Date: 20090123
  Receipt Date: 20090112
  Transmission Date: 20090719
  Serious: Yes (Life-Threatening, Hospitalization, Other)
  Sender: FDA-Public Use
  Company Number: BR-JNJFOC-20080703981

PATIENT
  Sex: Male
  Weight: 60 kg

DRUGS (2)
  1. REMICADE [Suspect]
     Indication: PSORIATIC ARTHROPATHY
     Dosage: INFUSIONS ON UNKNOWN DATES FOR MORE THAN A YEAR
     Route: 042
  2. REMICADE [Suspect]
     Indication: PSORIASIS
     Dosage: INFUSIONS ON UNKNOWN DATES FOR MORE THAN A YEAR
     Route: 042

REACTIONS (4)
  - ANAEMIA [None]
  - DISSEMINATED TUBERCULOSIS [None]
  - GASTRITIS [None]
  - RED BLOOD CELL SEDIMENTATION RATE INCREASED [None]
